FAERS Safety Report 4516223-7 (Version None)
Quarter: 2004Q4

REPORT INFORMATION
  Report Type: 
  Country: None (occurrence: None)
  Receive Date: 20041005
  Receipt Date: 20031114
  Transmission Date: 20050328
  Serious: Yes (Other)
  Sender: FDA-Public Use
  Company Number: US-JNJFOC-20031001158

PATIENT
  Age: 12 Year
  Sex: Male
  Weight: 50.3493 kg

DRUGS (1)
  1. CONCERTA [Suspect]
     Indication: ATTENTION DEFICIT/HYPERACTIVITY DISORDER
     Dosage: 36 MG, 1 IN 1 DAY, ORAL;  54 MG, 1 IN 1 DAY, ORAL
     Route: 048
     Dates: start: 20030828, end: 20030920

REACTIONS (2)
  - AGGRESSION [None]
  - ANXIETY [None]
